FAERS Safety Report 25164201 (Version 1)
Quarter: 2025Q2

REPORT INFORMATION
  Report Type: Spontaneous
  Country: US (occurrence: US)
  Receive Date: 20250405
  Receipt Date: 20250405
  Transmission Date: 20250717
  Serious: Yes (Life-Threatening, Other)
  Sender: MERCK SHARP AND DOHME
  Company Number: US-009507513-2270658

PATIENT
  Age: 53 Year
  Sex: Female

DRUGS (8)
  1. RALTEGRAVIR [Suspect]
     Active Substance: RALTEGRAVIR
     Indication: HIV infection
     Dosage: 400 MG ONCE A DAY
     Route: 048
  2. AMIODARONE [Suspect]
     Active Substance: AMIODARONE
     Indication: Arrhythmia prophylaxis
     Dosage: 200MG TWICE DAILY
     Route: 048
  3. AMIODARONE [Suspect]
     Active Substance: AMIODARONE
     Indication: Arrhythmia prophylaxis
     Route: 040
  4. AMIODARONE [Suspect]
     Active Substance: AMIODARONE
     Indication: Arrhythmia prophylaxis
     Route: 041
  5. ABACAVIR [Suspect]
     Active Substance: ABACAVIR
     Indication: HIV infection
     Dosage: 300MG TWICE DAILY
     Route: 065
  6. LAMIVUDINE [Suspect]
     Active Substance: LAMIVUDINE
     Indication: HIV infection
     Dosage: 150MG DAILY
     Route: 065
  7. DARUNAVIR [Suspect]
     Active Substance: DARUNAVIR
     Indication: HIV infection
     Dosage: 600MG TWICE A DAY
     Route: 065
  8. METOPROLOL [Concomitant]
     Active Substance: METOPROLOL
     Indication: Arrhythmia prophylaxis
     Dosage: 12.5MG TWICE DAILY
     Route: 048

REACTIONS (5)
  - Torsade de pointes [Recovering/Resolving]
  - Cardiac arrest [Recovering/Resolving]
  - Long QT syndrome [Recovering/Resolving]
  - Inappropriate schedule of product administration [Unknown]
  - Drug interaction [Unknown]
